FAERS Safety Report 18973794 (Version 17)
Quarter: 2022Q1

REPORT INFORMATION
  Report Type: Spontaneous
  Country: US (occurrence: US)
  Receive Date: 20210305
  Receipt Date: 20220126
  Transmission Date: 20220423
  Serious: Yes (Hospitalization, Other)
  Sender: FDA-Public Use
  Company Number: US-GLOBAL BLOOD THERAPEUTICS INC-US-GBT-21-00690

PATIENT
  Sex: Female

DRUGS (10)
  1. OXBRYTA [Suspect]
     Active Substance: VOXELOTOR
     Indication: Sickle cell anaemia with crisis
     Route: 048
     Dates: start: 20210212
  2. MELOXICAM [Suspect]
     Active Substance: MELOXICAM
     Indication: Product used for unknown indication
     Dosage: NOT PROVIDED.
  3. ACETAMINOPHEN [Concomitant]
     Active Substance: ACETAMINOPHEN
     Indication: Product used for unknown indication
     Route: 048
     Dates: start: 20180919
  4. DEBROX [Concomitant]
     Active Substance: CARBAMIDE PEROXIDE
     Indication: Cerumen removal
     Dosage: DROPS IN BOTH EARS AS NEEDED FOR EAR WAX REMOVAL
     Route: 001
     Dates: start: 20180919
  5. MELATONIN [Concomitant]
     Active Substance: MELATONIN
     Indication: Product used for unknown indication
     Route: 048
     Dates: start: 20180919
  6. ENDOCET [Concomitant]
     Active Substance: ACETAMINOPHEN\OXYCODONE HYDROCHLORIDE
     Indication: Product used for unknown indication
     Dosage: ENDOCET 7.5/325MG (OXYCODONE/ACETAMINOPHEN)
     Route: 048
     Dates: start: 20180919
  7. VITAMIN D3 [Concomitant]
     Active Substance: CHOLECALCIFEROL
     Indication: Product used for unknown indication
     Route: 048
     Dates: start: 20180919
  8. FOLIC ACID [Concomitant]
     Active Substance: FOLIC ACID
     Indication: Product used for unknown indication
     Route: 048
     Dates: start: 20180919
  9. HYDREA [Concomitant]
     Active Substance: HYDROXYUREA
     Indication: Product used for unknown indication
     Route: 048
     Dates: start: 20180919
  10. XARELTO [Concomitant]
     Active Substance: RIVAROXABAN
     Indication: Product used for unknown indication
     Route: 048
     Dates: start: 20190722, end: 20200120

REACTIONS (12)
  - Haemoptysis [Unknown]
  - Osteonecrosis [Not Recovered/Not Resolved]
  - Sickle cell anaemia with crisis [Recovered/Resolved]
  - Cholecystitis [Recovered/Resolved]
  - Sickle cell anaemia with crisis [Recovered/Resolved]
  - Gastric ulcer [Recovered/Resolved]
  - Cholecystectomy [Recovered/Resolved with Sequelae]
  - Cholecystitis infective [Recovered/Resolved with Sequelae]
  - Musculoskeletal chest pain [Unknown]
  - Epistaxis [Recovered/Resolved]
  - Fatigue [Unknown]
  - Product dose omission issue [Unknown]

NARRATIVE: CASE EVENT DATE: 20210101
